FAERS Safety Report 5800766-X (Version None)
Quarter: 2008Q3

REPORT INFORMATION
  Report Type: 
  Country: None (occurrence: None)
  Receive Date: 20080701
  Receipt Date: 20080616
  Transmission Date: 20090109
  Serious: Yes (Death, Hospitalization)
  Sender: FDA-Public Use
  Company Number: 2008001423

PATIENT
  Age: 63 Year
  Sex: Female

DRUGS (2)
  1. TARCEVA [Suspect]
     Indication: LUNG NEOPLASM MALIGNANT
     Dosage: (150 MG,QD),ORAL
     Route: 048
     Dates: start: 20070528, end: 20070705
  2. AMITRIPTLINE HYDROCHLORIDE TAB [Concomitant]

REACTIONS (6)
  - CONVULSION [None]
  - DRUG INTERACTION [None]
  - NEOPLASM MALIGNANT [None]
  - RASH [None]
  - RESPIRATORY FAILURE [None]
  - SKIN BURNING SENSATION [None]
